FAERS Safety Report 9579471 (Version 2)
Quarter: 2013Q4

REPORT INFORMATION
  Report Type: Spontaneous
  Country: US (occurrence: US)
  Receive Date: 20131001
  Receipt Date: 20131001
  Transmission Date: 20140711
  Serious: No
  Sender: FDA-Public Use
  Company Number: US-AMGEN-USASP2013005717

PATIENT
  Age: 17 Year
  Sex: Female
  Weight: 49.89 kg

DRUGS (6)
  1. ENBREL [Suspect]
     Indication: JUVENILE IDIOPATHIC ARTHRITIS
     Dosage: 50 MG, QWK
     Route: 058
  2. METHOTREXATE [Concomitant]
     Dosage: 2.5 MG, UNK
  3. PRILOSEC                           /00661201/ [Concomitant]
     Dosage: 20 MG, UNK
  4. FOLIC ACID [Concomitant]
     Dosage: UNK
  5. MULTIVITAMIN                       /00097801/ [Concomitant]
     Dosage: UNK
  6. LO LOESTRIN FE [Concomitant]
     Dosage: UNK

REACTIONS (4)
  - Weight decreased [Unknown]
  - Injection site bruising [Unknown]
  - Injection site swelling [Unknown]
  - Muscle atrophy [Unknown]
